FAERS Safety Report 16913590 (Version 1)
Quarter: 2019Q4

REPORT INFORMATION
  Report Type: Spontaneous
  Country: IT (occurrence: IT)
  Receive Date: 20191014
  Receipt Date: 20191014
  Transmission Date: 20200122
  Serious: Yes (Other)
  Sender: FDA-Public Use
  Company Number: IT-OXFORD PHARMACEUTICALS, LLC-2019OXF00151

PATIENT
  Age: 81 Year
  Sex: Female

DRUGS (1)
  1. DIPYRIDAMOLE. [Suspect]
     Active Substance: DIPYRIDAMOLE
     Indication: STRESS ECHOCARDIOGRAM
     Route: 065

REACTIONS (1)
  - Stress cardiomyopathy [Unknown]
